FAERS Safety Report 26209860 (Version 1)
Quarter: 2025Q4

REPORT INFORMATION
  Report Type: Spontaneous
  Country: US (occurrence: US)
  Receive Date: 20251229
  Receipt Date: 20251229
  Transmission Date: 20260119
  Serious: Yes (Death, Hospitalization)
  Sender: MYLAN
  Company Number: US-MYLANLABS-2025M1110691

PATIENT
  Age: 43 Year
  Sex: Male

DRUGS (16)
  1. VANCOMYCIN HYDROCHLORIDE [Suspect]
     Active Substance: VANCOMYCIN HYDROCHLORIDE
     Indication: Empyema
     Dosage: UNK
  2. VANCOMYCIN HYDROCHLORIDE [Suspect]
     Active Substance: VANCOMYCIN HYDROCHLORIDE
     Indication: Staphylococcal infection
     Dosage: UNK
     Route: 042
  3. VANCOMYCIN HYDROCHLORIDE [Suspect]
     Active Substance: VANCOMYCIN HYDROCHLORIDE
     Dosage: UNK
     Route: 042
  4. VANCOMYCIN HYDROCHLORIDE [Suspect]
     Active Substance: VANCOMYCIN HYDROCHLORIDE
     Dosage: UNK
  5. DAPTOMYCIN [Suspect]
     Active Substance: DAPTOMYCIN
     Indication: Empyema
     Dosage: UNK
  6. DAPTOMYCIN [Suspect]
     Active Substance: DAPTOMYCIN
     Indication: Staphylococcal infection
     Dosage: UNK
     Route: 065
  7. DAPTOMYCIN [Suspect]
     Active Substance: DAPTOMYCIN
     Dosage: UNK
     Route: 065
  8. DAPTOMYCIN [Suspect]
     Active Substance: DAPTOMYCIN
     Dosage: UNK
  9. ZOSYN [Suspect]
     Active Substance: PIPERACILLIN SODIUM\TAZOBACTAM SODIUM
     Indication: Empyema
     Dosage: UNK
  10. ZOSYN [Suspect]
     Active Substance: PIPERACILLIN SODIUM\TAZOBACTAM SODIUM
     Indication: Staphylococcal infection
     Dosage: UNK
     Route: 065
  11. ZOSYN [Suspect]
     Active Substance: PIPERACILLIN SODIUM\TAZOBACTAM SODIUM
     Dosage: UNK
     Route: 065
  12. ZOSYN [Suspect]
     Active Substance: PIPERACILLIN SODIUM\TAZOBACTAM SODIUM
     Dosage: UNK
  13. CEFTAROLINE [Suspect]
     Active Substance: CEFTAROLINE
     Indication: Empyema
     Dosage: UNK
  14. CEFTAROLINE [Suspect]
     Active Substance: CEFTAROLINE
     Indication: Staphylococcal infection
     Dosage: UNK
     Route: 065
  15. CEFTAROLINE [Suspect]
     Active Substance: CEFTAROLINE
     Dosage: UNK
     Route: 065
  16. CEFTAROLINE [Suspect]
     Active Substance: CEFTAROLINE
     Dosage: UNK

REACTIONS (1)
  - Drug ineffective [Fatal]
